FAERS Safety Report 25189073 (Version 3)
Quarter: 2025Q2

REPORT INFORMATION
  Report Type: Spontaneous
  Country: JP (occurrence: JP)
  Receive Date: 20250411
  Receipt Date: 20250603
  Transmission Date: 20250716
  Serious: No
  Sender: ARGENX BVBA
  Company Number: JP-ARGENX-2025-ARGX-JP004228

PATIENT

DRUGS (2)
  1. EFGARTIGIMOD ALFA\HYALURONIDASE-QVFC [Suspect]
     Active Substance: EFGARTIGIMOD ALFA\HYALURONIDASE-QVFC
     Indication: Autoimmune nodopathy
     Route: 058
     Dates: start: 20250326, end: 20250409
  2. PREDNISOLONE [Concomitant]
     Active Substance: PREDNISOLONE
     Indication: Product used for unknown indication
     Route: 048

REACTIONS (4)
  - Off label use [Unknown]
  - Injection site pain [Unknown]
  - Somnolence [Unknown]
  - Muscular weakness [Unknown]

NARRATIVE: CASE EVENT DATE: 20250326
